FAERS Safety Report 8418574-2 (Version None)
Quarter: 2012Q2

REPORT INFORMATION
  Report Type: 
  Country: None (occurrence: None)
  Receive Date: 20120607
  Receipt Date: 20120605
  Transmission Date: 20120825
  Serious: No
  Sender: FDA-Public Use
  Company Number: US-PFIZER INC-2012135631

PATIENT
  Sex: Female
  Weight: 80 kg

DRUGS (6)
  1. SKELAXIN [Suspect]
     Indication: FIBROMYALGIA
     Dosage: 800 MG, 4X/DAY
     Route: 048
  2. LYRICA [Suspect]
     Indication: FIBROMYALGIA
     Dosage: 75 MG, 2X/DAY
     Route: 048
  3. XANAX [Concomitant]
     Dosage: 2 MG, 1X/DAY
  4. CYMBALTA [Concomitant]
     Dosage: 30 MG, 4X/DAY
  5. NAPROXEN [Concomitant]
     Dosage: 500 MG, 1X/DAY
  6. OXYCONTIN [Concomitant]
     Dosage: 30 MG, 4X/DAY

REACTIONS (3)
  - ARTHRALGIA [None]
  - INTERVERTEBRAL DISC PROTRUSION [None]
  - OEDEMA PERIPHERAL [None]
